FAERS Safety Report 15455600 (Version 1)
Quarter: 2018Q4

REPORT INFORMATION
  Report Type: Spontaneous
  Country: KR (occurrence: KR)
  Receive Date: 20181002
  Receipt Date: 20181002
  Transmission Date: 20190204
  Serious: Yes (Death, Other)
  Sender: FDA-Public Use
  Company Number: KR-INCYTE CORPORATION-2018IN009623

PATIENT

DRUGS (1)
  1. JAKAVI [Suspect]
     Active Substance: RUXOLITINIB
     Indication: PRIMARY MYELOFIBROSIS
     Dosage: 20 MG, BID
     Route: 065
     Dates: start: 20151124

REACTIONS (6)
  - Abdominal discomfort [Unknown]
  - Hepatomegaly [Unknown]
  - Primary myelofibrosis [Unknown]
  - Death [Fatal]
  - Flank pain [Unknown]
  - Splenomegaly [Unknown]

NARRATIVE: CASE EVENT DATE: 20160212
